FAERS Safety Report 18104809 (Version 2)
Quarter: 2020Q4

REPORT INFORMATION
  Report Type: Report from Study
  Country: None (occurrence: US)
  Receive Date: 20200804
  Receipt Date: 20201028
  Transmission Date: 20210113
  Serious: Yes (Other)
  Sender: FDA-Public Use
  Company Number: US-ABBVIE-20K-163-3506820-00

PATIENT
  Age: 61 Year
  Sex: Female

DRUGS (1)
  1. HUMIRA [Suspect]
     Active Substance: ADALIMUMAB
     Indication: RHEUMATOID ARTHRITIS
     Dosage: CITRATE FREE
     Route: 058

REACTIONS (7)
  - Loss of consciousness [Unknown]
  - Fatigue [Unknown]
  - Lower limb fracture [Recovering/Resolving]
  - Fibula fracture [Not Recovered/Not Resolved]
  - Syncope [Not Recovered/Not Resolved]
  - Fall [Unknown]
  - Ligament sprain [Unknown]

NARRATIVE: CASE EVENT DATE: 20200718
